FAERS Safety Report 4731951-6 (Version None)
Quarter: 2005Q3

REPORT INFORMATION
  Report Type: 
  Country: None (occurrence: None)
  Receive Date: 20050725
  Receipt Date: 20041006
  Transmission Date: 20060218
  Serious: Yes (Other)
  Sender: FDA-Public Use
  Company Number: WAES 0410USA00936

PATIENT
  Sex: Female

DRUGS (5)
  1. VIOXX [Suspect]
     Indication: BACK PAIN
     Dosage: 25 MG/DAILY/PO
     Route: 048
     Dates: end: 20030521
  2. COZAAR [Concomitant]
  3. HYDRODIURIL [Concomitant]
  4. METOPROLOL [Concomitant]
  5. VERAPAMIL [Concomitant]

REACTIONS (3)
  - ABDOMINAL DISCOMFORT [None]
  - HYPERTENSION [None]
  - STOMACH DISCOMFORT [None]
